FAERS Safety Report 6343604-1 (Version None)
Quarter: 2009Q3

REPORT INFORMATION
  Report Type: 
  Country: None (occurrence: None)
  Receive Date: 20090908
  Receipt Date: 20081231
  Transmission Date: 20100115
  Serious: No
  Sender: FDA-Public Use
  Company Number: US-BAYER-200910059NA

PATIENT
  Age: 28 Year
  Sex: Female

DRUGS (1)
  1. MAGNEVIST [Suspect]
     Indication: CHEST WALL MASS
     Dosage: TOTAL DAILY DOSE: 20 ML  UNIT DOSE: 20 ML
     Route: 042
     Dates: start: 20081223, end: 20081223

REACTIONS (1)
  - VOMITING [None]
